FAERS Safety Report 13153469 (Version 1)
Quarter: 2017Q1

REPORT INFORMATION
  Report Type: Spontaneous
  Country: US (occurrence: US)
  Receive Date: 20170121
  Receipt Date: 20170121
  Transmission Date: 20170428
  Serious: Yes (Other)
  Sender: FDA-Public Use
  Company Number: None

PATIENT
  Age: 52 Year
  Sex: Female
  Weight: 70.2 kg

DRUGS (11)
  1. CITALAPRAM [Concomitant]
  2. CALCIUM WITH VITAMIN D [Concomitant]
     Active Substance: CALCIUM\VITAMIN D
  3. WELLBUTRIN XL [Concomitant]
     Active Substance: BUPROPION HYDROCHLORIDE
  4. WELLBUTRIN XL [Concomitant]
     Active Substance: BUPROPION HYDROCHLORIDE
  5. BUPROPN HCL [Suspect]
     Active Substance: BUPROPION HYDROCHLORIDE
     Indication: DEPRESSION
     Dosage: ?          QUANTITY:1 TABLET(S);?
     Route: 048
     Dates: start: 20161122, end: 20170104
  6. SIMVASTATIN. [Concomitant]
     Active Substance: SIMVASTATIN
  7. IBUPROFFEN [Concomitant]
  8. MULTIVIT [Concomitant]
     Active Substance: VITAMINS
  9. BUPROPN HCL [Suspect]
     Active Substance: BUPROPION HYDROCHLORIDE
     Indication: ANXIETY
     Dosage: ?          QUANTITY:1 TABLET(S);?
     Route: 048
     Dates: start: 20161122, end: 20170104
  10. TRAZODONE [Concomitant]
     Active Substance: TRAZODONE HYDROCHLORIDE
  11. MELATONIN [Concomitant]
     Active Substance: MELATONIN

REACTIONS (4)
  - Palpitations [None]
  - Crying [None]
  - Product substitution issue [None]
  - Mental disorder [None]

NARRATIVE: CASE EVENT DATE: 20170103
